FAERS Safety Report 9531853 (Version 1)
Quarter: 2013Q3

REPORT INFORMATION
  Report Type: Spontaneous
  Country: US (occurrence: US)
  Receive Date: 20130918
  Receipt Date: 20130918
  Transmission Date: 20140515
  Serious: No
  Sender: FDA-Public Use
  Company Number: US-PFIZER INC-2013268606

PATIENT
  Age: 47 Year
  Sex: Female
  Weight: 56.6 kg

DRUGS (3)
  1. NICOTROL INHALER [Suspect]
     Indication: SMOKING CESSATION THERAPY
     Dosage: UNK
  2. CHANTIX [Suspect]
     Indication: SMOKING CESSATION THERAPY
     Dosage: UNK
     Dates: start: 2012, end: 2012
  3. BABY ASPIRIN [Concomitant]
     Dosage: 81 MG (IN MORNING), DAILY

REACTIONS (2)
  - Nightmare [Recovered/Resolved]
  - Expired drug administered [Unknown]
